FAERS Safety Report 8196287-2 (Version None)
Quarter: 2012Q1

REPORT INFORMATION
  Report Type: 
  Country: None (occurrence: None)
  Receive Date: 20120229
  Receipt Date: 20101015
  Transmission Date: 20120608
  Serious: No
  Sender: FDA-Public Use
  Company Number: 011514

PATIENT
  Sex: Male

DRUGS (7)
  1. SPIRONOLACTONE [Concomitant]
  2. SAMSCA [Suspect]
     Indication: HYPONATRAEMIA
     Dosage: 15 MG, QD, ORAL
     Route: 048
     Dates: start: 20100913
  3. SAMSCA [Suspect]
     Indication: SCROTAL OEDEMA
     Dosage: 15 MG, QD, ORAL
     Route: 048
     Dates: start: 20100913
  4. SAMSCA [Suspect]
     Indication: HYPONATRAEMIA
     Dosage: 15 MG, QD, ORAL
     Route: 048
     Dates: start: 20101012
  5. SAMSCA [Suspect]
     Indication: SCROTAL OEDEMA
     Dosage: 15 MG, QD, ORAL
     Route: 048
     Dates: start: 20101012
  6. ZAROXOLYN [Concomitant]
  7. LASIX [Concomitant]

REACTIONS (1)
  - WEIGHT INCREASED [None]
